FAERS Safety Report 4523333-7 (Version None)
Quarter: 2004Q4

REPORT INFORMATION
  Report Type: 
  Country: None (occurrence: None)
  Receive Date: 20041209
  Receipt Date: 20041209
  Transmission Date: 20050328
  Serious: Yes (Other)
  Sender: FDA-Public Use
  Company Number: None

PATIENT
  Age: 72 Year
  Sex: Male

DRUGS (4)
  1. PREDNISONE [Suspect]
     Indication: HYPERTHYROIDISM
     Dosage: 50MG   TAPERED   ORAL
     Route: 048
     Dates: start: 20040224, end: 20040702
  2. METOPROLOL [Concomitant]
  3. PSYLLIUM [Concomitant]
  4. FELODIPINE [Concomitant]

REACTIONS (1)
  - MOOD SWINGS [None]
